FAERS Safety Report 9296927 (Version 1)
Quarter: 2013Q2

REPORT INFORMATION
  Report Type: Report from Study
  Country: CA (occurrence: CA)
  Receive Date: 20130518
  Receipt Date: 20130518
  Transmission Date: 20140414
  Serious: Yes (Hospitalization)
  Sender: FDA-Public Use
  Company Number: CA-ROCHE-1225918

PATIENT
  Sex: Female
  Weight: 79.8 kg

DRUGS (4)
  1. RITUXAN [Suspect]
     Indication: GRANULOMATOSIS WITH POLYANGIITIS
     Dosage: LAST DOSE ON 30/APR/2013
     Route: 042
     Dates: start: 20130406
  2. PREDNISONE [Concomitant]
  3. FOLIC ACID [Concomitant]
  4. RABEPRAZOLE [Concomitant]

REACTIONS (1)
  - Thrombosis [Recovering/Resolving]
